FAERS Safety Report 8835124 (Version 1)
Quarter: 2012Q4

REPORT INFORMATION
  Report Type: 
  Country: ES (occurrence: ES)
  Receive Date: 20121011
  Receipt Date: 20121011
  Transmission Date: 20130627
  Serious: Yes (Hospitalization)
  Sender: FDA-Public Use
  Company Number: ES-ABBOTT-12P-144-0990671-00

PATIENT
  Age: 83 Year
  Sex: Male

DRUGS (6)
  1. KLACID [Suspect]
     Indication: RESPIRATORY TRACT INFECTION
     Route: 048
     Dates: start: 20120208, end: 20120214
  2. SINTROM [Interacting]
     Indication: ATRIAL FIBRILLATION
     Route: 048
     Dates: start: 2000, end: 20120214
  3. DUODART [Concomitant]
     Indication: BENIGN PROSTATIC HYPERPLASIA
     Dosage: 0.5/0.4 mg
     Dates: start: 2009
  4. NEURONTIN [Concomitant]
     Indication: NEURALGIA
     Dosage: 900mg daily
     Route: 048
     Dates: start: 2009
  5. ORFIDAL [Concomitant]
     Indication: INSOMNIA
     Dates: start: 201102
  6. TRYPTIZOL [Concomitant]
     Indication: DEPRESSION
     Dosage: 10 mg daily
     Route: 048
     Dates: start: 2009

REACTIONS (3)
  - Anaemia [Recovered/Resolved]
  - Muscle haemorrhage [Recovered/Resolved]
  - Drug interaction [Unknown]
